FAERS Safety Report 16776376 (Version 6)
Quarter: 2020Q4

REPORT INFORMATION
  Report Type: Spontaneous
  Country: US (occurrence: US)
  Receive Date: 20190905
  Receipt Date: 20201221
  Transmission Date: 20210113
  Serious: Yes (Hospitalization, Disabling)
  Sender: FDA-Public Use
  Company Number: US-AMERICAN REGENT INC-2019001903

PATIENT
  Sex: Male
  Weight: 80 kg

DRUGS (14)
  1. INJECTAFER [Suspect]
     Active Substance: FERRIC CARBOXYMALTOSE
     Indication: COLITIS
  2. CALCIUM VITAMIN D3 [Concomitant]
     Indication: PRODUCT USED FOR UNKNOWN INDICATION
     Dosage: TAKE 900 MILLIGRAM  BY MOUTH DAILY
     Route: 048
  3. ZYRTEC [Concomitant]
     Active Substance: CETIRIZINE HYDROCHLORIDE
     Indication: PRODUCT USED FOR UNKNOWN INDICATION
     Dosage: TAKE 10MG BY MOUTH DAILY
     Route: 048
  4. PSYLLIUM                           /01328801/ [Concomitant]
     Active Substance: PLANTAGO SEED
     Indication: PRODUCT USED FOR UNKNOWN INDICATION
     Dosage: TAKE 1 TABLESPOON BY MOUTH ONCE DAILY
     Route: 048
  5. PSYLLIUM                           /01328801/ [Concomitant]
     Active Substance: PLANTAGO SEED
     Dosage: TAKE 1 TABLESPOON BY MOUTH 2 TIMES DAILY
     Route: 048
  6. INJECTAFER [Suspect]
     Active Substance: FERRIC CARBOXYMALTOSE
     Indication: IRON DEFICIENCY ANAEMIA
     Dosage: 750 MG IN 100ML SODIUM CHLORIDE AT RATE OF 500 ML/HR
     Dates: start: 20190514, end: 20190514
  7. TEMOVATE [Concomitant]
     Active Substance: CLOBETASOL PROPIONATE
     Indication: PRODUCT USED FOR UNKNOWN INDICATION
     Dosage: APPLY SPARINGLY TO AFFECTED AREA TWICE DAILY FOR FLARES AND THEN ON WEEKENDS FOR NON FLARE TIMES
     Route: 065
  8. OMEGA 3                            /01333901/ [Concomitant]
     Active Substance: FISH OIL\TOCOPHEROL
     Indication: PRODUCT USED FOR UNKNOWN INDICATION
     Dosage: TAKE 2,000MG BY MOUTH DAILY
     Route: 048
  9. OMEGA 3                            /01333901/ [Concomitant]
     Active Substance: FISH OIL\TOCOPHEROL
     Dosage: 2000 MG BY MOUTH EVERY MORNING
     Route: 048
  10. CALCIUM VITAMIN D3 [Concomitant]
     Dosage: 450 MG BY MOUTH DAILY
     Route: 048
  11. FLUTICASONE. [Concomitant]
     Active Substance: FLUTICASONE
     Indication: PRODUCT USED FOR UNKNOWN INDICATION
     Dosage: SPRAY 1-2 SPRAYS INTO BOTH NOSTRILS DAILY
     Route: 045
  12. MULTIVITAMIN AND MINERAL [Concomitant]
     Active Substance: MINERALS\VITAMINS
     Indication: PRODUCT USED FOR UNKNOWN INDICATION
     Dosage: TAKE BY MOUTH DAILY
     Route: 048
  13. CALCIPOTRIENE. [Concomitant]
     Active Substance: CALCIPOTRIENE
     Indication: PRODUCT USED FOR UNKNOWN INDICATION
     Dosage: USE MONDAY THROUGH FRIDAY TWICE DAILY
     Route: 065
  14. MULTIVITAMIN AND MINERAL [Concomitant]
     Active Substance: MINERALS\VITAMINS
     Dosage: 1 TABLET BY MOUTH AT BEDTIME
     Route: 048

REACTIONS (11)
  - Tachycardia [Recovered/Resolved]
  - Anxiety [Not Recovered/Not Resolved]
  - Chest pain [Recovered/Resolved]
  - Product quality issue [Unknown]
  - Impaired self-care [Not Recovered/Not Resolved]
  - Hypophosphataemia [Recovering/Resolving]
  - Back pain [Not Recovered/Not Resolved]
  - Anhedonia [Not Recovered/Not Resolved]
  - Pain [Not Recovered/Not Resolved]
  - Emotional distress [Not Recovered/Not Resolved]
  - Arrhythmia [Not Recovered/Not Resolved]

NARRATIVE: CASE EVENT DATE: 2019
